FAERS Safety Report 6447059-8 (Version None)
Quarter: 2009Q4

REPORT INFORMATION
  Report Type: 
  Country: None (occurrence: None)
  Receive Date: 20091119
  Receipt Date: 20091110
  Transmission Date: 20100525
  Serious: Yes (Other)
  Sender: FDA-Public Use
  Company Number: DE-PFIZER INC-2009295336

PATIENT
  Age: 59 Year
  Sex: Female

DRUGS (1)
  1. SOBELIN [Suspect]
     Indication: TOOTH INFECTION
     Dosage: UNK
     Route: 048
     Dates: start: 20091030

REACTIONS (1)
  - PARKINSON'S DISEASE [None]
